FAERS Safety Report 9382904 (Version 1)
Quarter: 2013Q3

REPORT INFORMATION
  Report Type: Spontaneous
  Country: None (occurrence: JP)
  Receive Date: 20130703
  Receipt Date: 20130703
  Transmission Date: 20140515
  Serious: Yes (Death, Other)
  Sender: FDA-Public Use
  Company Number: JP-BAXTER-2012BH005781

PATIENT
  Age: 73 Year
  Sex: Male

DRUGS (1)
  1. CYCLOPHOSPHAMIDE INJECTION 500 MG [Suspect]
     Indication: CHRONIC INFLAMMATORY DEMYELINATING POLYRADICULONEUROPATHY

REACTIONS (2)
  - Multi-organ failure [Fatal]
  - Cystitis haemorrhagic [Not Recovered/Not Resolved]
